FAERS Safety Report 24626737 (Version 1)
Quarter: 2024Q4

REPORT INFORMATION
  Report Type: Spontaneous
  Country: US (occurrence: US)
  Receive Date: 20241115
  Receipt Date: 20241115
  Transmission Date: 20250114
  Serious: No
  Sender: NOVO NORDISK
  Company Number: US-NOVOPROD-1283891

PATIENT
  Age: 65 Year
  Sex: Male

DRUGS (1)
  1. NOVOLOG [Suspect]
     Active Substance: INSULIN ASPART
     Indication: Type 2 diabetes mellitus
     Dosage: 65 IU, QD (25 UNITS MORNING  15 AFTERNOON  25 UNITS EVENING)
     Route: 058

REACTIONS (1)
  - Visual impairment [Unknown]
